FAERS Safety Report 24313789 (Version 3)
Quarter: 2024Q4

REPORT INFORMATION
  Report Type: Report from Study
  Country: US (occurrence: US)
  Receive Date: 20240912
  Receipt Date: 20241212
  Transmission Date: 20250114
  Serious: Yes (Other)
  Sender: NOVARTIS
  Company Number: US-002147023-NVSC2024US087547

PATIENT
  Age: 36 Year
  Sex: Female

DRUGS (2)
  1. KESIMPTA [Suspect]
     Active Substance: OFATUMUMAB
     Indication: Relapsing multiple sclerosis
     Dosage: 20 MG, QMO
     Route: 058
     Dates: start: 20240124
  2. KESIMPTA [Suspect]
     Active Substance: OFATUMUMAB
     Indication: Multiple sclerosis

REACTIONS (8)
  - Hallucination, visual [Unknown]
  - Depression [Unknown]
  - Alopecia [Unknown]
  - Tinnitus [Unknown]
  - Inappropriate schedule of product administration [Unknown]
  - Headache [Unknown]
  - Product prescribing issue [Unknown]
  - Disorientation [Unknown]

NARRATIVE: CASE EVENT DATE: 20240930
